FAERS Safety Report 6258763-9 (Version None)
Quarter: 2009Q3

REPORT INFORMATION
  Report Type: 
  Country: None (occurrence: None)
  Receive Date: 20090707
  Receipt Date: 20090622
  Transmission Date: 20100115
  Serious: Yes (Death, Life-Threatening, Hospitalization)
  Sender: FDA-Public Use
  Company Number: BE-MERCK-0906BEL00017

PATIENT
  Age: 21 Year
  Sex: Female
  Weight: 67 kg

DRUGS (11)
  1. CANCIDAS [Suspect]
     Indication: CANDIDIASIS
     Route: 041
     Dates: start: 20090106, end: 20090114
  2. VORICONAZOLE [Concomitant]
     Indication: CANDIDIASIS
     Route: 041
     Dates: start: 20081220, end: 20081220
  3. VORICONAZOLE [Concomitant]
     Route: 041
     Dates: start: 20090104, end: 20090105
  4. FLUCONAZOLE [Concomitant]
     Indication: CANDIDIASIS
     Route: 041
     Dates: start: 20090103, end: 20090104
  5. FLUCONAZOLE [Concomitant]
     Route: 041
     Dates: start: 20081223, end: 20090102
  6. ERYTHROMYCIN [Concomitant]
     Indication: BACTERIAL INFECTION
     Route: 065
     Dates: start: 20081230, end: 20090102
  7. LINEZOLID [Concomitant]
     Indication: BACTERIAL INFECTION
     Route: 065
     Dates: start: 20081223, end: 20081229
  8. MEROPENEM [Concomitant]
     Indication: BACTERIAL INFECTION
     Route: 041
     Dates: start: 20081012, end: 20081031
  9. SULFAMETHOXAZOLE AND TRIMETHOPRIM [Concomitant]
     Indication: BACTERIAL INFECTION
     Route: 065
     Dates: start: 20081220, end: 20081222
  10. MYCOPHENOLATE MOFETIL [Concomitant]
     Route: 065
     Dates: start: 20081220, end: 20090102
  11. CORTICOSTEROIDS (UNSPECIFIED) [Concomitant]
     Route: 065

REACTIONS (4)
  - ACUTE GRAFT VERSUS HOST DISEASE [None]
  - FUNGAL INFECTION [None]
  - ORGAN FAILURE [None]
  - VIRAL INFECTION [None]
